FAERS Safety Report 7971694 (Version 12)
Quarter: 2013Q3

REPORT INFORMATION
  Report Type: Report from Study
  Country: US (occurrence: US)
  Receive Date: 20110602
  Receipt Date: 20130816
  Transmission Date: 20140515
  Serious: Yes (Death, Hospitalization, Other)
  Sender: FDA-Public Use
  Company Number: US-BRISTOL-MYERS SQUIBB COMPANY-15780935

PATIENT
  Age: 72 Year
  Sex: Male
  Weight: 109 kg

DRUGS (26)
  1. IPILIMUMAB [Suspect]
     Indication: MALIGNANT MELANOMA
     Dosage: LAST DOSE:18APR11?09MAY11,COURSES: 2?10MG/KGIV(INDUC THER)?10MG/KGIV(MAIN THER)?CY:21D?1170MG
     Route: 042
     Dates: start: 20110418
  2. NAPROSYN [Concomitant]
  3. DECADRON [Concomitant]
  4. MEGACE [Concomitant]
  5. MAALOX [Concomitant]
  6. ASPIRIN [Concomitant]
  7. MULTIVITAMINS [Concomitant]
  8. COMPAZINE [Concomitant]
  9. FAMOTIDINE [Concomitant]
  10. ZANTAC [Concomitant]
  11. ZOFRAN [Concomitant]
  12. TUMS [Concomitant]
  13. LASIX [Concomitant]
  14. DULCOLAX [Concomitant]
  15. GLUCOSAMINE [Concomitant]
  16. OCEAN [Concomitant]
  17. POTASSIUM CHLORIDE [Concomitant]
  18. TYLENOL [Concomitant]
  19. FLOMAX [Concomitant]
  20. SEROQUEL [Concomitant]
  21. ZOCOR [Concomitant]
  22. LOVENOX [Concomitant]
  23. TOPROL [Concomitant]
  24. NEXIUM [Concomitant]
  25. CELEXA [Concomitant]
  26. DIFLUCAN [Concomitant]

REACTIONS (10)
  - Large intestine perforation [Fatal]
  - Sepsis [Fatal]
  - Colitis [Unknown]
  - Dehydration [Recovered/Resolved]
  - Muscular weakness [Recovering/Resolving]
  - Fatigue [Not Recovered/Not Resolved]
  - Gait disturbance [Not Recovered/Not Resolved]
  - Dysphagia [Not Recovered/Not Resolved]
  - Hypoalbuminaemia [Unknown]
  - Lymphocyte count decreased [Unknown]
